FAERS Safety Report 7623281-X (Version None)
Quarter: 2011Q3

REPORT INFORMATION
  Report Type: 
  Country: None (occurrence: None)
  Receive Date: 20110720
  Receipt Date: 20110708
  Transmission Date: 20111222
  Serious: Yes (Other)
  Sender: FDA-Public Use
  Company Number: US-AMGEN-USASP2011034876

PATIENT
  Age: 43 Year
  Sex: Female

DRUGS (1)
  1. ENBREL [Suspect]
     Indication: PSORIATIC ARTHROPATHY
     Dosage: 50 MG, QWK
     Dates: start: 20101230, end: 20110418

REACTIONS (5)
  - URTICARIA [None]
  - SWOLLEN TONGUE [None]
  - DYSPNOEA [None]
  - DRUG HYPERSENSITIVITY [None]
  - PALATAL OEDEMA [None]
